FAERS Safety Report 7267708-4 (Version None)
Quarter: 2011Q1

REPORT INFORMATION
  Report Type: 
  Country: None (occurrence: None)
  Receive Date: 20110201
  Receipt Date: 20110127
  Transmission Date: 20110831
  Serious: No
  Sender: FDA-Public Use
  Company Number: US-PFIZER INC-2011020421

PATIENT
  Sex: Female
  Weight: 107.94 kg

DRUGS (3)
  1. ADVIL [Suspect]
     Indication: PYREXIA
  2. ADVIL [Suspect]
     Indication: PAIN
  3. ADVIL [Suspect]
     Indication: HEADACHE
     Dosage: 400 MG, 2X/DAY
     Route: 048

REACTIONS (1)
  - LIP SWELLING [None]
